FAERS Safety Report 16541145 (Version 1)
Quarter: 2019Q3

REPORT INFORMATION
  Report Type: Report from Study
  Country: JP (occurrence: JP)
  Receive Date: 20190708
  Receipt Date: 20190708
  Transmission Date: 20191004
  Serious: Yes (Other)
  Sender: FDA-Public Use
  Company Number: JP-PFIZER INC-2019289659

PATIENT
  Age: 85 Year
  Sex: Male

DRUGS (4)
  1. AMPICILLIN SODIUM/SULBACTAM SODIUM [Suspect]
     Active Substance: AMPICILLIN SODIUM\SULBACTAM SODIUM
     Indication: VASCULAR DEVICE INFECTION
     Dosage: UNK
  2. CEFACLOR. [Suspect]
     Active Substance: CEFACLOR
     Indication: VASCULAR DEVICE INFECTION
     Dosage: 750 MG, 1X/DAY
     Route: 048
  3. CEPHAZOLIN SODIUM [Suspect]
     Active Substance: CEFAZOLIN SODIUM
     Dosage: 1 G, 2X/DAY
     Route: 042
  4. CEPHAZOLIN SODIUM [Suspect]
     Active Substance: CEFAZOLIN SODIUM
     Indication: VASCULAR DEVICE INFECTION
     Dosage: 1 G, UNK

REACTIONS (1)
  - Drug-induced liver injury [Unknown]
